FAERS Safety Report 9888453 (Version 1)
Quarter: 2014Q1

REPORT INFORMATION
  Report Type: Spontaneous
  Country: US (occurrence: US)
  Receive Date: 20140211
  Receipt Date: 20140211
  Transmission Date: 20141002
  Serious: Yes (Hospitalization)
  Sender: FDA-Public Use
  Company Number: US-B.I. PHARMACEUTICALS,INC./RIDGEFIELD-2014-BI-05986BP

PATIENT
  Age: 64 Year
  Sex: Male
  Weight: 122 kg

DRUGS (4)
  1. PRADAXA [Suspect]
     Indication: ATRIAL FIBRILLATION
     Dosage: 300 MG
     Route: 048
     Dates: start: 2013
  2. DOXEPIN [Concomitant]
     Indication: POST-TRAUMATIC STRESS DISORDER
     Dosage: 50 MG
     Route: 048
  3. PROZCAC [Concomitant]
     Indication: POST-TRAUMATIC STRESS DISORDER
     Dosage: 20 MG
     Route: 048
     Dates: start: 1991
  4. VALIUM [Concomitant]
     Indication: POST-TRAUMATIC STRESS DISORDER
     Dosage: 30 MG
     Route: 048

REACTIONS (2)
  - Staphylococcal infection [Recovered/Resolved]
  - Skin irritation [Not Recovered/Not Resolved]
